FAERS Safety Report 21394943 (Version 3)
Quarter: 2023Q2

REPORT INFORMATION
  Report Type: Report from Study
  Country: EG (occurrence: EG)
  Receive Date: 20220930
  Receipt Date: 20230505
  Transmission Date: 20230721
  Serious: Yes (Other)
  Sender: FDA-Public Use
  Company Number: EG-NOVARTISPH-NVSC2022EG213407

PATIENT
  Age: 64 Year
  Sex: Female

DRUGS (10)
  1. COSENTYX [Suspect]
     Active Substance: SECUKINUMAB
     Indication: Psoriasis
     Dosage: 300 MG, Q2MO (2 PREFILLED PEN EVERY 2 MONTHS AND NOW UPGRADED TO EVERY  MONTHS BASED ON HCP DECISION
     Route: 058
     Dates: start: 20180101
  2. COSENTYX [Suspect]
     Active Substance: SECUKINUMAB
     Indication: Psoriatic arthropathy
     Dosage: UNK UNK, QMO (MONTHLY IN SUMMER)
     Route: 058
     Dates: start: 201805
  3. COSENTYX [Suspect]
     Active Substance: SECUKINUMAB
     Dosage: UNK UNK, Q2MO ( EVERY 2 MONTHS IN WINTER (BASED ON HER HCP DECISION))
     Route: 058
  4. COSENTYX [Suspect]
     Active Substance: SECUKINUMAB
     Dosage: 300 MG, QMO (2 PREFILLED PEN OF COSENTYX 150MG)
     Route: 058
     Dates: start: 20220919
  5. COSENTYX [Suspect]
     Active Substance: SECUKINUMAB
     Dosage: 300 MG, Q2W (2 PREFILLED PEN OF COSENTYX 150MG)
     Route: 058
     Dates: start: 20221115
  6. COSENTYX [Suspect]
     Active Substance: SECUKINUMAB
     Dosage: 300 MG, QMO (2 PREFILLED PENS  MONTHLY IN SUMMER AND EVERY 2 MONTHS IN WINTER)
     Route: 058
     Dates: start: 202302
  7. BISOPROLOL FUMARATE [Concomitant]
     Active Substance: BISOPROLOL FUMARATE
     Indication: Hypertension
     Dosage: 1 DOSAGE FORM, QD (AT NIGHT), STARTED 10 YEARS AGO
     Route: 065
     Dates: start: 2013
  8. NORVASC [Concomitant]
     Active Substance: AMLODIPINE BESYLATE
     Indication: Hypertension
     Dosage: UNK
     Route: 065
     Dates: start: 202207
  9. LASIX [Concomitant]
     Active Substance: FUROSEMIDE
     Indication: Polyuria
     Dosage: 0.5 DF, QD (1/4 TABLET)
     Route: 065
     Dates: start: 20220801
  10. ERASTAPEX [Concomitant]
     Indication: Hypertension
     Dosage: 1 DOSAGE FORM (20/12.5), QD (IN MORNING)
     Route: 065
     Dates: start: 2013

REACTIONS (8)
  - Renal impairment [Recovered/Resolved]
  - Psoriasis [Recovering/Resolving]
  - Fatigue [Recovering/Resolving]
  - Hepatic enzyme increased [Recovered/Resolved]
  - Hypoacusis [Unknown]
  - Alopecia [Unknown]
  - Product use issue [Recovered/Resolved]
  - Drug ineffective [Not Recovered/Not Resolved]

NARRATIVE: CASE EVENT DATE: 20180101
